FAERS Safety Report 14368298 (Version 5)
Quarter: 2018Q3

REPORT INFORMATION
  Report Type: Spontaneous
  Country: PR (occurrence: PR)
  Receive Date: 20180109
  Receipt Date: 20180702
  Transmission Date: 20181010
  Serious: No
  Sender: FDA-Public Use
  Company Number: PR-PFIZER INC-2018007904

PATIENT
  Age: 61 Year
  Sex: Female
  Weight: 112 kg

DRUGS (3)
  1. IBRANCE [Suspect]
     Active Substance: PALBOCICLIB
     Indication: BREAST CANCER FEMALE
     Dosage: 125 MG, DAILY
     Route: 048
     Dates: start: 20171221
  2. IBRANCE [Suspect]
     Active Substance: PALBOCICLIB
     Dosage: 125 MG, CYCLIC [1 CAPSULE DAILY 1?21/DAYS]
     Route: 048
     Dates: start: 20171222
  3. IBRANCE [Suspect]
     Active Substance: PALBOCICLIB
     Dosage: 125 MG, CYCLIC (DAILY)
     Route: 048
     Dates: start: 20171223

REACTIONS (10)
  - Influenza like illness [Unknown]
  - Drug dose omission [Unknown]
  - Peripheral swelling [Unknown]
  - Pain [Unknown]
  - Fatigue [Unknown]
  - Nausea [Unknown]
  - Alopecia [Unknown]
  - Diarrhoea [Unknown]
  - Bone pain [Unknown]
  - Decreased appetite [Unknown]
